FAERS Safety Report 7622976-1 (Version None)
Quarter: 2011Q3

REPORT INFORMATION
  Report Type: 
  Country: None (occurrence: None)
  Receive Date: 20110720
  Receipt Date: 20110707
  Transmission Date: 20111222
  Serious: Yes (Other)
  Sender: FDA-Public Use
  Company Number: US-JNJFOC-20110703475

PATIENT
  Sex: Male
  Weight: 117.94 kg

DRUGS (6)
  1. GLYBURIDE [Concomitant]
     Indication: DIABETES MELLITUS
     Route: 048
     Dates: start: 20030101
  2. LANTUS [Concomitant]
     Indication: DIABETES MELLITUS
     Dosage: 60U
     Route: 048
     Dates: start: 20030101
  3. REMICADE [Suspect]
     Indication: PSORIASIS
     Route: 042
     Dates: start: 20070101
  4. METFORMIN HCL [Concomitant]
     Indication: DIABETES MELLITUS
     Dosage: THE AE FORM LISTS: 1000MG/TABLET/100MG/2 PER DAY
     Route: 048
     Dates: start: 20030101
  5. LISINOPRIL [Concomitant]
     Indication: HYPERTENSION
     Route: 048
     Dates: start: 20030101
  6. ZOCOR [Concomitant]
     Route: 048

REACTIONS (2)
  - NEPHROLITHIASIS [None]
  - HYPERSENSITIVITY [None]
